FAERS Safety Report 8912502 (Version 1)
Quarter: 2012Q4

REPORT INFORMATION
  Report Type: Report from Study
  Country: NL (occurrence: NL)
  Receive Date: 20121115
  Receipt Date: 20121115
  Transmission Date: 20130627
  Serious: Yes (Hospitalization)
  Sender: FDA-Public Use
  Company Number: NL-ASTRAZENECA-2012SE05330

PATIENT
  Age: 25705 Day
  Sex: Female

DRUGS (9)
  1. OMEPRAZOLE [Suspect]
     Indication: GASTRIC DISORDER
     Route: 048
     Dates: start: 201012, end: 20110707
  2. CALCICHEW D3 [Suspect]
     Indication: RHINITIS
     Dosage: 500/400
     Route: 048
     Dates: start: 201102, end: 20110707
  3. CALCICHEW D3 [Suspect]
     Indication: OSTEOPOROSIS
     Dosage: 500/400
     Route: 048
     Dates: start: 201102, end: 20110707
  4. FLIXONASE [Suspect]
     Indication: OSTEOPOROSIS
     Route: 061
     Dates: start: 201102, end: 20110707
  5. FOSAMAX [Suspect]
     Route: 065
     Dates: start: 201102, end: 20110707
  6. HYDROCHLOROTHIAZID [Suspect]
     Indication: HYPERTENSION
     Route: 065
     Dates: start: 201012, end: 20110707
  7. ARIMIDEX [Suspect]
     Indication: BREAST CANCER
     Route: 048
     Dates: start: 20070715
  8. DURATEARS [Concomitant]
     Indication: DRY EYE
     Route: 047
     Dates: start: 2008
  9. VIT B12 [Concomitant]
     Dates: start: 2008

REACTIONS (2)
  - Renal impairment [Recovered/Resolved]
  - Blood alkaline phosphatase increased [Recovered/Resolved]
